FAERS Safety Report 4358866-X (Version None)
Quarter: 2004Q2

REPORT INFORMATION
  Report Type: 
  Country: None (occurrence: None)
  Receive Date: 20040511
  Receipt Date: 20040506
  Transmission Date: 20050107
  Serious: Yes (Death)
  Sender: FDA-Public Use
  Company Number: KII-2001-0003075

PATIENT

DRUGS (2)
  1. MS CONTIN [Suspect]
  2. BENZODIAZEPINE DERIVATIVES [Suspect]

REACTIONS (1)
  - RESPIRATORY FAILURE [None]
